FAERS Safety Report 8624475-7 (Version None)
Quarter: 2012Q3

REPORT INFORMATION
  Report Type: 
  Country: None (occurrence: None)
  Receive Date: 20120827
  Receipt Date: 20120815
  Transmission Date: 20120928
  Serious: Yes (Hospitalization)
  Sender: FDA-Public Use
  Company Number: DE-BRISTOL-MYERS SQUIBB COMPANY-16660193

PATIENT
  Age: 61 Year
  Sex: Male

DRUGS (13)
  1. ERBITUX [Suspect]
     Indication: TONGUE NEOPLASM MALIGNANT STAGE UNSPECIFIED
     Dosage: 1DF: 17-17APR12:692MG, 24-24APR12:428MG, 02-02MAY12:415MG, 08-08MAY12: 420MG
     Route: 042
     Dates: start: 20120417, end: 20120508
  2. METOPROLOL TARTRATE [Concomitant]
     Route: 048
     Dates: start: 20120424
  3. NOVALGIN [Concomitant]
     Dosage: DROPS (40-40-40-40)
     Route: 048
  4. SPIRONOLACTONE [Concomitant]
     Dosage: STRENGTH:50MG
     Route: 048
     Dates: start: 20120424
  5. DEXAMETHASONE [Concomitant]
     Indication: PREMEDICATION
  6. TEPILTA [Concomitant]
     Dates: start: 20120424
  7. DYNEXAN [Concomitant]
     Indication: ORAL CANDIDIASIS
     Dosage: MOUTH GEL
     Dates: start: 20120424
  8. FENISTIL [Concomitant]
     Indication: PREMEDICATION
  9. SIMVASTATIN [Concomitant]
     Dosage: 0-0-1
     Route: 048
     Dates: start: 20120424
  10. LIDOCAINE [Concomitant]
     Indication: PAIN
     Dosage: LIDOCAINE MSL 2PERCENT
     Dates: start: 20120424
  11. VOLTAREN [Concomitant]
     Dosage: 1-0-1
     Route: 048
  12. RANITIDINE [Concomitant]
     Indication: PREMEDICATION
  13. ACETYLSALICYLIC ACID SRT [Concomitant]
     Indication: PAIN
     Dosage: 100
     Dates: start: 20120424

REACTIONS (4)
  - RADIATION SKIN INJURY [None]
  - DERMATITIS [None]
  - STEVENS-JOHNSON SYNDROME [None]
  - SUPERINFECTION BACTERIAL [None]
